FAERS Safety Report 16658401 (Version 1)
Quarter: 2019Q3

REPORT INFORMATION
  Report Type: Spontaneous
  Country: US (occurrence: US)
  Receive Date: 20190801
  Receipt Date: 20190801
  Transmission Date: 20191004
  Serious: Yes (Hospitalization)
  Sender: FDA-Public Use
  Company Number: None

PATIENT
  Age: 59 Year
  Sex: Male

DRUGS (4)
  1. HUMIRA [Suspect]
     Active Substance: ADALIMUMAB
     Indication: COLITIS ULCERATIVE
     Dosage: ?          OTHER FREQUENCY:EVERY OTHER WEEK;?
     Route: 058
     Dates: start: 20181002
  2. RAMAPRIL, LIALDA, ATORVASTATIN, HUMALOG, DIAZEPAM [Concomitant]
  3. FLUTICASON, HYDROCODONE, VENTOLIN HFA [Concomitant]
  4. ALBUTEROL, NOVOLIN, LANTUS, GLIPIZIDE [Concomitant]

REACTIONS (1)
  - Condition aggravated [None]

NARRATIVE: CASE EVENT DATE: 20190710
